APPROVED DRUG PRODUCT: TIAGABINE HYDROCHLORIDE
Active Ingredient: TIAGABINE HYDROCHLORIDE
Strength: 4MG
Dosage Form/Route: TABLET;ORAL
Application: A206857 | Product #002
Applicant: WILSHIRE PHARMACEUTICALS INC
Approved: Oct 13, 2017 | RLD: No | RS: No | Type: DISCN